FAERS Safety Report 19051844 (Version 3)
Quarter: 2021Q4

REPORT INFORMATION
  Report Type: Spontaneous
  Country: US (occurrence: US)
  Receive Date: 20210324
  Receipt Date: 20211013
  Transmission Date: 20220303
  Serious: Yes (Other)
  Sender: FDA-Public Use
  Company Number: US-PFIZER INC-2021192361

PATIENT
  Age: 60 Year
  Sex: Female
  Weight: 81.65 kg

DRUGS (2)
  1. CHANTIX [Suspect]
     Active Substance: VARENICLINE TARTRATE
     Indication: Smoking cessation therapy
     Dosage: 1 MG, 1X/DAY (1MG TABLETS ONCE A DAY IN THE MORNING)
  2. CHANTIX [Suspect]
     Active Substance: VARENICLINE TARTRATE
     Indication: Bipolar disorder

REACTIONS (12)
  - COVID-19 [Unknown]
  - Mental disorder [Unknown]
  - Anxiety [Unknown]
  - Malaise [Unknown]
  - Eye swelling [Unknown]
  - Gait disturbance [Unknown]
  - Fatigue [Recovered/Resolved]
  - Cough [Recovered/Resolved]
  - Vitamin D decreased [Unknown]
  - Crying [Unknown]
  - Therapeutic response unexpected [Unknown]
  - Off label use [Unknown]
